FAERS Safety Report 11682245 (Version 1)
Quarter: 2015Q4

REPORT INFORMATION
  Report Type: Spontaneous
  Country: US (occurrence: None)
  Receive Date: 20151028
  Receipt Date: 20151028
  Transmission Date: 20160304
  Serious: Yes (Hospitalization)
  Sender: FDA-Public Use
  Company Number: None

PATIENT
  Sex: Male
  Weight: 117.7 kg

DRUGS (1)
  1. BEVACIZUMAB (RHUMAB VEGF) [Suspect]
     Active Substance: BEVACIZUMAB
     Dates: end: 20150921

REACTIONS (9)
  - Hyperreflexia [None]
  - Aggression [None]
  - Cognitive disorder [None]
  - Clonus [None]
  - Aphasia [None]
  - Nuclear magnetic resonance imaging brain abnormal [None]
  - Partial seizures [None]
  - Agitation [None]
  - Confusional state [None]

NARRATIVE: CASE EVENT DATE: 20151023
